FAERS Safety Report 8492693-7 (Version None)
Quarter: 2012Q3

REPORT INFORMATION
  Report Type: 
  Country: None (occurrence: None)
  Receive Date: 20120706
  Receipt Date: 20120626
  Transmission Date: 20120928
  Serious: Yes (Hospitalization, Other)
  Sender: FDA-Public Use
  Company Number: TW-ABBOTT-12P-153-0950789-00

PATIENT
  Sex: Female

DRUGS (1)
  1. HUMIRA [Suspect]
     Indication: RHEUMATOID ARTHRITIS
     Route: 058

REACTIONS (8)
  - TACHYPNOEA [None]
  - PNEUMONIA [None]
  - PYREXIA [None]
  - OXYGEN SATURATION DECREASED [None]
  - SPUTUM RETENTION [None]
  - COUGH [None]
  - DYSPNOEA [None]
  - TACHYCARDIA [None]
